FAERS Safety Report 9708992 (Version 1)
Quarter: 2013Q4

REPORT INFORMATION
  Report Type: Spontaneous
  Country: FR (occurrence: FR)
  Receive Date: 20131125
  Receipt Date: 20131125
  Transmission Date: 20140711
  Serious: Yes (Other)
  Sender: FDA-Public Use
  Company Number: FR-UCBSA-103564

PATIENT
  Age: 47 Year
  Sex: Female

DRUGS (4)
  1. NEUPRO [Suspect]
     Indication: PARKINSON^S DISEASE
     Dosage: DAILY DOSE: 6 MG
     Route: 062
     Dates: start: 201210
  2. AZILECT [Concomitant]
     Indication: PARKINSON^S DISEASE
     Dosage: DAILY DOSE: 1 MG
     Route: 048
     Dates: start: 201210
  3. STALEVO [Concomitant]
     Indication: PARKINSON^S DISEASE
     Dosage: DAILY DOSE: 225 MG
     Route: 048
     Dates: start: 201210
  4. REQUIP [Concomitant]
     Indication: PARKINSON^S DISEASE
     Dates: start: 201208, end: 201209

REACTIONS (5)
  - Impulse-control disorder [Not Recovered/Not Resolved]
  - Compulsive shopping [Not Recovered/Not Resolved]
  - Psychomotor hyperactivity [Recovered/Resolved]
  - Stereotypy [Recovered/Resolved]
  - Somnolence [Unknown]
